FAERS Safety Report 5130611-X (Version None)
Quarter: 2006Q4

REPORT INFORMATION
  Report Type: 
  Country: None (occurrence: None)
  Receive Date: 20061018
  Receipt Date: 20061018
  Transmission Date: 20070319
  Serious: Yes (Other)
  Sender: FDA-Public Use
  Company Number: None

PATIENT
  Sex: Female
  Weight: 25.1746 kg

DRUGS (8)
  1. VELCADE [Suspect]
     Indication: MULTIPLE MYELOMA
     Dosage: 1.3MG/M2 DAYS 1,4,8 AND 11 IV
     Route: 042
     Dates: start: 20060901, end: 20060901
  2. DOXORUBICIN HCL [Suspect]
     Indication: MULTIPLE MYELOMA
     Dosage: 15MG/M2 DAY 1 AND 8 IV
     Route: 042
     Dates: start: 20060829, end: 20060829
  3. GABAPENTIN [Concomitant]
  4. MORPHINE [Concomitant]
  5. PROTONIX [Concomitant]
  6. VALGANCICLOVIR HCL [Concomitant]
  7. METOPROLOL [Concomitant]
  8. LEXAPRO [Concomitant]

REACTIONS (4)
  - CYTOMEGALOVIRUS INFECTION [None]
  - DEEP VEIN THROMBOSIS [None]
  - ENCEPHALITIS [None]
  - OESOPHAGITIS [None]
